FAERS Safety Report 21870262 (Version 1)
Quarter: 2023Q1

REPORT INFORMATION
  Report Type: Spontaneous
  Country: US (occurrence: US)
  Receive Date: 20230117
  Receipt Date: 20230117
  Transmission Date: 20230417
  Serious: Yes (Other)
  Sender: FDA-Public Use
  Company Number: US-MALLINCKRODT-T202300008

PATIENT
  Sex: Male

DRUGS (1)
  1. H.P. ACTHAR [Suspect]
     Active Substance: CORTICOTROPIN
     Indication: Keratitis
     Dosage: 80 UNITS TWICE PER WEEK
     Route: 058
     Dates: start: 20220816

REACTIONS (2)
  - Liver injury [Unknown]
  - Infection [Unknown]

NARRATIVE: CASE EVENT DATE: 20220101
